FAERS Safety Report 7231997-2 (Version None)
Quarter: 2011Q1

REPORT INFORMATION
  Report Type: 
  Country: None (occurrence: None)
  Receive Date: 20110118
  Receipt Date: 20110111
  Transmission Date: 20110831
  Serious: Yes (Hospitalization, Other)
  Sender: FDA-Public Use
  Company Number: US-RB-018802-10

PATIENT
  Age: 40 Year
  Sex: Male

DRUGS (4)
  1. SUBOXONE [Suspect]
     Indication: PRODUCT USED FOR UNKNOWN INDICATION
     Dosage: SUBLINGUAL FILM- DOSING INFORMATION UNKNOWN
     Route: 065
  2. SUBOXONE [Suspect]
     Indication: PRODUCT USED FOR UNKNOWN INDICATION
     Dosage: DOSAGE INFORMATION UNKNOWN
     Route: 065
  3. DEPAKOTE [Suspect]
     Indication: PRODUCT USED FOR UNKNOWN INDICATION
     Dosage: DOSAGE INFORMATION UNKNOWN
     Route: 065
  4. VITAMIN B TREATMENT [Suspect]
     Indication: PRODUCT USED FOR UNKNOWN INDICATION
     Dosage: DOSING INFORMATION UNKNOWN
     Route: 065

REACTIONS (26)
  - PNEUMONIA [None]
  - CHEST PAIN [None]
  - MUSCULOSKELETAL DISORDER [None]
  - LIBIDO DECREASED [None]
  - ABDOMINAL DISCOMFORT [None]
  - ANXIETY [None]
  - PERICARDIAL EFFUSION [None]
  - LYMPHADENOPATHY [None]
  - DRUG WITHDRAWAL SYNDROME [None]
  - INSOMNIA [None]
  - ARTHRALGIA [None]
  - PSYCHOMOTOR HYPERACTIVITY [None]
  - MYOCARDIAL INFARCTION [None]
  - BIPOLAR DISORDER [None]
  - ARTERIAL OCCLUSIVE DISEASE [None]
  - MUSCULOSKELETAL PAIN [None]
  - HEART RATE ABNORMAL [None]
  - INTENTIONAL DRUG MISUSE [None]
  - DISTURBANCE IN ATTENTION [None]
  - EUPHORIC MOOD [None]
  - BACK PAIN [None]
  - NAUSEA [None]
  - LACERATION [None]
  - MUSCULOSKELETAL STIFFNESS [None]
  - BLOOD DISORDER [None]
  - CORONARY ARTERY OCCLUSION [None]
